FAERS Safety Report 8801173 (Version 2)
Quarter: 2012Q4

REPORT INFORMATION
  Report Type: 
  Country: US (occurrence: US)
  Receive Date: 20120920
  Receipt Date: 20121005
  Transmission Date: 20130627
  Serious: Yes (Hospitalization, Other)
  Sender: FDA-Public Use
  Company Number: US-ROCHE-1130509

PATIENT
  Age: 13 Year
  Sex: Male
  Weight: 44.5 kg

DRUGS (6)
  1. NUTROPIN AQ [Suspect]
     Indication: PRODUCT USED FOR UNKNOWN INDICATION
     Route: 058
  2. CLONIDINE [Concomitant]
     Dosage: at night
     Route: 048
     Dates: start: 20110906
  3. CALCITRIOL [Concomitant]
     Indication: RENAL FAILURE CHRONIC
     Route: 048
     Dates: start: 20100803
  4. AMLODIPINE [Concomitant]
     Indication: HYPERTENSION
     Route: 048
     Dates: start: 20100727
  5. IRON [Concomitant]
     Indication: IRON DEFICIENCY
     Route: 048
  6. VYVANSE [Concomitant]
     Indication: ATTENTION DEFICIT/HYPERACTIVITY DISORDER
     Route: 048
     Dates: start: 20100929

REACTIONS (2)
  - Fall [Unknown]
  - Epiphyseal fracture [Recovering/Resolving]
